FAERS Safety Report 24443420 (Version 1)
Quarter: 2024Q4

REPORT INFORMATION
  Report Type: Spontaneous
  Country: US (occurrence: US)
  Receive Date: 20241016
  Receipt Date: 20241016
  Transmission Date: 20250115
  Serious: No
  Sender: HIKMA
  Company Number: US-H14001-16-00167

PATIENT
  Age: 50 Year
  Sex: Female

DRUGS (5)
  1. CLINDAMYCIN [Suspect]
     Active Substance: CLINDAMYCIN
     Indication: Product used for unknown indication
     Dosage: 300 MILLIGRAM, QID
     Route: 048
     Dates: start: 20120302
  2. INFUMORPH [Suspect]
     Active Substance: MORPHINE SULFATE
     Dosage: 0.099 MILLIGRAM
     Route: 037
  3. INFUMORPH [Suspect]
     Active Substance: MORPHINE SULFATE
     Indication: Pain
     Dosage: 0.24 MILLIGRAM, QD
     Route: 037
  4. INFUMORPH [Suspect]
     Active Substance: MORPHINE SULFATE
     Dosage: 0.264 MILLIGRAM, QD
     Route: 037
  5. INFUMORPH [Suspect]
     Active Substance: MORPHINE SULFATE
     Dosage: 0.363 MILLIGRAM, QD
     Route: 037

REACTIONS (2)
  - Implant site erythema [Recovered/Resolved]
  - Implant site discharge [Recovered/Resolved]

NARRATIVE: CASE EVENT DATE: 20120302
